FAERS Safety Report 26094209 (Version 1)
Quarter: 2025Q4

REPORT INFORMATION
  Report Type: Spontaneous
  Country: US (occurrence: US)
  Receive Date: 20251126
  Receipt Date: 20251126
  Transmission Date: 20260118
  Serious: No
  Sender: BAYER HEALTHCARE LLC
  Company Number: US-BAYER-2025A156600

PATIENT

DRUGS (1)
  1. ALEVE PM [Suspect]
     Active Substance: DIPHENHYDRAMINE HYDROCHLORIDE\NAPROXEN SODIUM
     Indication: Pain
     Dosage: UNK, TAKE JUST ONE, OR I CUT IT AND TAKE ONLY A HALF
     Route: 048

REACTIONS (1)
  - Wrong technique in product usage process [Unknown]
